FAERS Safety Report 11061313 (Version 1)
Quarter: 2015Q2

REPORT INFORMATION
  Report Type: Spontaneous
  Country: US (occurrence: None)
  Receive Date: 20150423
  Receipt Date: 20150423
  Transmission Date: 20150821
  Serious: Yes (Disabling, Other)
  Sender: FDA-Public Use
  Company Number: None

PATIENT
  Age: 49 Year
  Sex: Female
  Weight: 48.08 kg

DRUGS (14)
  1. METHYLPROGESTERONE [Concomitant]
  2. PLAQUENIL [Concomitant]
     Active Substance: HYDROXYCHLOROQUINE SULFATE
  3. ARAVA [Concomitant]
     Active Substance: LEFLUNOMIDE
  4. PERCOCET [Concomitant]
     Active Substance: ACETAMINOPHEN\OXYCODONE HYDROCHLORIDE
  5. VITAMIN D [Concomitant]
     Active Substance: CHOLECALCIFEROL
  6. MAGNESIUM [Concomitant]
     Active Substance: MAGNESIUM
  7. SETRADIOL [Concomitant]
  8. DIAZEPAM. [Concomitant]
     Active Substance: DIAZEPAM
  9. KLONOPIN [Concomitant]
     Active Substance: CLONAZEPAM
  10. PROAIR INHALER [Concomitant]
  11. SYMBICORT [Concomitant]
     Active Substance: BUDESONIDE\FORMOTEROL FUMARATE DIHYDRATE
  12. ATENOLOL 25 MG [Concomitant]
     Active Substance: ATENOLOL
  13. SEROQUEL 300 [Concomitant]
  14. CLEARLAX [Suspect]
     Active Substance: POLYETHYLENE GLYCOL 3350
     Indication: CONSTIPATION
     Dosage: 1 CAPFUL IN WATER
     Route: 048

REACTIONS (6)
  - Depression [None]
  - Suicide attempt [None]
  - Abdominal pain upper [None]
  - Insomnia [None]
  - Rheumatoid arthritis [None]
  - Derealisation [None]
